FAERS Safety Report 18842393 (Version 1)
Quarter: 2021Q1

REPORT INFORMATION
  Report Type: Spontaneous
  Country: US (occurrence: US)
  Receive Date: 20210204
  Receipt Date: 20210204
  Transmission Date: 20210419
  Serious: No
  Sender: FDA-Public Use
  Company Number: US-TAKEDA-US202013986

PATIENT
  Sex: Male
  Weight: 91 kg

DRUGS (3)
  1. PENTASA [Suspect]
     Active Substance: MESALAMINE
     Indication: CROHN^S DISEASE
     Dosage: 4 DOSAGE FORM, BID
     Route: 065
  2. PENTASA [Suspect]
     Active Substance: MESALAMINE
  3. OMEPRAZOLE. [Concomitant]
     Active Substance: OMEPRAZOLE

REACTIONS (3)
  - Product availability issue [Unknown]
  - Product use in unapproved indication [Unknown]
  - No adverse event [Unknown]
